FAERS Safety Report 8508507-2 (Version None)
Quarter: 2012Q3

REPORT INFORMATION
  Report Type: 
  Country: None (occurrence: None)
  Receive Date: 20120713
  Receipt Date: 20120705
  Transmission Date: 20120928
  Serious: Yes (Hospitalization, Other)
  Sender: FDA-Public Use
  Company Number: US-NOVOPROD-353820

PATIENT
  Age: 35 Year
  Sex: Male
  Weight: 113.38 kg

DRUGS (10)
  1. VICTOZA [Suspect]
     Dosage: 1.8 MG, DAILY
     Route: 058
     Dates: start: 20120501, end: 20120606
  2. WELCHOL [Concomitant]
     Indication: PRODUCT USED FOR UNKNOWN INDICATION
     Dosage: 1875 MG, TWICE A DAY
     Route: 048
  3. VICTOZA [Suspect]
     Dosage: 1.8 MG, DAILY
     Route: 058
     Dates: start: 20120622
  4. METFORMIN HYDROCHLORIDE [Concomitant]
     Indication: TYPE 2 DIABETES MELLITUS
     Dosage: 1000 MG, TWICE A DAY
     Route: 048
  5. SILYBUM MARIANUM [Concomitant]
     Indication: PRODUCT USED FOR UNKNOWN INDICATION
     Dosage: 500 MG, UNK
     Route: 048
  6. VICTOZA [Suspect]
     Indication: TYPE 2 DIABETES MELLITUS
     Dosage: 1.2 MG, DAILY
     Route: 058
     Dates: start: 20120101, end: 20120501
  7. VICTOZA [Suspect]
     Dosage: 1.2 MG, DAILY
     Route: 058
     Dates: start: 20120611, end: 20120621
  8. ENBREL [Concomitant]
     Indication: PSORIASIS
     Dosage: 25 MG, ONCE A WEEK
     Route: 058
  9. VITAMINS                           /00067501/ [Concomitant]
     Indication: PRODUCT USED FOR UNKNOWN INDICATION
     Route: 048
  10. ACIDOPHILUS [Concomitant]
     Indication: PRODUCT USED FOR UNKNOWN INDICATION
     Route: 048

REACTIONS (1)
  - THYROID CANCER [None]
